FAERS Safety Report 9281938 (Version 2)
Quarter: 2013Q2

REPORT INFORMATION
  Report Type: Spontaneous
  Country: US (occurrence: US)
  Receive Date: 20130510
  Receipt Date: 20130617
  Transmission Date: 20140414
  Serious: No
  Sender: FDA-Public Use
  Company Number: US-009507513-1305USA002541

PATIENT
  Age: 27 Year
  Sex: Female
  Weight: 71.66 kg

DRUGS (1)
  1. IMPLANON [Suspect]
     Indication: CONTRACEPTION
     Dosage: 1 DF, UNK
     Route: 059
     Dates: start: 20130102

REACTIONS (2)
  - Medical device complication [Not Recovered/Not Resolved]
  - Drug dose omission [Unknown]
